FAERS Safety Report 4412839-7 (Version None)
Quarter: 2004Q3

REPORT INFORMATION
  Report Type: 
  Country: None (occurrence: None)
  Receive Date: 20040727
  Receipt Date: 20040714
  Transmission Date: 20050211
  Serious: Yes (Hospitalization)
  Sender: FDA-Public Use
  Company Number: HQ0848321FEB2002

PATIENT
  Age: 53 Year
  Sex: Female

DRUGS (2)
  1. DIMETAPP [Suspect]
     Dosage: ORAL
     Route: 048
  2. ALKA-SELTZER PLUS (ACETYLSALICYLIC ACID/CHLORPHENAMINE MALEATE/PHENYLP [Suspect]

REACTIONS (5)
  - CEREBRAL INFARCTION [None]
  - HYSTERECTOMY [None]
  - INFECTION [None]
  - PLATELET COUNT INCREASED [None]
  - VASCULITIS [None]
